FAERS Safety Report 5975087-5 (Version None)
Quarter: 2008Q4

REPORT INFORMATION
  Report Type: 
  Country: None (occurrence: None)
  Receive Date: 20081128
  Receipt Date: 20081117
  Transmission Date: 20090506
  Serious: Yes (Other)
  Sender: FDA-Public Use
  Company Number: 20600

PATIENT
  Age: 12 Year
  Sex: Female

DRUGS (24)
  1. CARBOPLATIN [Suspect]
     Indication: EWING'S SARCOMA
  2. CARBOPLATIN [Suspect]
     Indication: METASTASIS
  3. FLUDARABINE PHOSPHATE [Suspect]
     Indication: EWING'S SARCOMA
  4. FLUDARABINE PHOSPHATE [Suspect]
     Indication: METASTASIS
  5. VINCRISTINE [Suspect]
     Indication: EWING'S SARCOMA
  6. VINCRISTINE [Suspect]
     Indication: METASTASIS
  7. IFOSFAMIDE [Suspect]
     Indication: EWING'S SARCOMA
  8. IFOSFAMIDE [Suspect]
     Indication: METASTASIS
  9. CYCLOPHOSPHAMIDE [Suspect]
     Indication: EWING'S SARCOMA
  10. CYCLOPHOSPHAMIDE [Suspect]
     Indication: METASTASIS
  11. ETOPOSIDE [Suspect]
     Indication: EWING'S SARCOMA
  12. ETOPOSIDE [Suspect]
     Indication: METASTASIS
  13. ETOPOSIDE [Suspect]
     Indication: EWING'S SARCOMA
  14. ETOPOSIDE [Suspect]
     Indication: METASTASIS
  15. ADRIAMYCIN PFS [Suspect]
     Indication: EWING'S SARCOMA
  16. ADRIAMYCIN PFS [Suspect]
     Indication: METASTASIS
  17. ZD1839 [Suspect]
     Indication: EWING'S SARCOMA
  18. ZD1839 [Suspect]
     Indication: METASTASIS
  19. IRINOTECAN HYDROCHLORIDE [Suspect]
     Indication: EWING'S SARCOMA
  20. IRINOTECAN HYDROCHLORIDE [Suspect]
     Indication: METASTASIS
  21. MELPHALAN [Suspect]
     Indication: EWING'S SARCOMA
  22. MELPHALAN [Suspect]
     Indication: METASTASIS
  23. THIOTEPA [Suspect]
     Indication: EWING'S SARCOMA
  24. THIOTEPA [Suspect]
     Indication: METASTASIS

REACTIONS (5)
  - AXONAL NEUROPATHY [None]
  - ENCEPHALOPATHY [None]
  - MYELOPATHY [None]
  - NEOPLASM PROGRESSION [None]
  - NERVOUS SYSTEM DISORDER [None]
